FAERS Safety Report 9061633 (Version 1)
Quarter: 2013Q1

REPORT INFORMATION
  Report Type: Spontaneous
  Country: US (occurrence: None)
  Receive Date: 20130211
  Receipt Date: 20130211
  Transmission Date: 20140127
  Serious: Yes (Hospitalization)
  Sender: FDA-Public Use
  Company Number: None

PATIENT
  Age: 64 Year
  Sex: Male
  Weight: 136.9 kg

DRUGS (1)
  1. NAPROXEN [Suspect]
     Indication: PAIN
     Route: 048
     Dates: start: 20121219, end: 20130123

REACTIONS (6)
  - Renal failure acute [None]
  - Tubulointerstitial nephritis [None]
  - Glomerulonephritis minimal lesion [None]
  - Glomerulonephritis membranoproliferative [None]
  - Renal failure acute [None]
  - Focal segmental glomerulosclerosis [None]
